FAERS Safety Report 9668051 (Version 1)
Quarter: 2013Q4

REPORT INFORMATION
  Report Type: Spontaneous
  Country: US (occurrence: None)
  Receive Date: 20131101
  Receipt Date: 20131101
  Transmission Date: 20140711
  Serious: Yes (Other)
  Sender: FDA-Public Use
  Company Number: 2013-US-002290

PATIENT
  Age: 22 Year
  Sex: Female

DRUGS (2)
  1. XYREM [Suspect]
     Indication: NARCOLEPSY
     Route: 048
     Dates: start: 201306, end: 201306
  2. XYREM [Suspect]
     Indication: CATAPLEXY
     Route: 048
     Dates: start: 201306, end: 201306

REACTIONS (5)
  - Reading disorder [None]
  - Language disorder [None]
  - Cognitive disorder [None]
  - Activities of daily living impaired [None]
  - Judgement impaired [None]
